FAERS Safety Report 15239638 (Version 1)
Quarter: 2018Q3

REPORT INFORMATION
  Report Type: Spontaneous
  Country: GB (occurrence: GB)
  Receive Date: 20180803
  Receipt Date: 20180803
  Transmission Date: 20181010
  Serious: Yes (Hospitalization, Disabling, Other)
  Sender: FDA-Public Use
  Company Number: GB-TEVA-2018-GB-934001

PATIENT
  Age: 61 Year
  Sex: Male
  Weight: 85 kg

DRUGS (8)
  1. LANSOPRAZOLE. [Concomitant]
     Active Substance: LANSOPRAZOLE
     Route: 065
  2. COTRIMOXAZOLE [Concomitant]
     Active Substance: SULFAMETHOXAZOLE\TRIMETHOPRIM
     Route: 065
  3. PARACETAMOL [Concomitant]
     Active Substance: ACETAMINOPHEN
     Route: 065
  4. ALENDRONIC ACID [Suspect]
     Active Substance: ALENDRONIC ACID
     Route: 048
     Dates: start: 20040101, end: 20180618
  5. PREDNISOLONE. [Concomitant]
     Active Substance: PREDNISOLONE
     Route: 065
  6. MOMETASONE [Concomitant]
     Active Substance: MOMETASONE
     Route: 065
  7. ADIZEM [Concomitant]
     Active Substance: DILTIAZEM HYDROCHLORIDE
     Route: 065
  8. CODEINE [Concomitant]
     Active Substance: CODEINE
     Route: 065

REACTIONS (1)
  - Stress fracture [Not Recovered/Not Resolved]

NARRATIVE: CASE EVENT DATE: 20180630
